FAERS Safety Report 20335600 (Version 1)
Quarter: 2022Q1

REPORT INFORMATION
  Report Type: Spontaneous
  Country: CA (occurrence: CA)
  Receive Date: 20220114
  Receipt Date: 20220114
  Transmission Date: 20220423
  Serious: Yes (Hospitalization)
  Sender: FDA-Public Use
  Company Number: CA-PFIZER INC-202200009185

PATIENT
  Age: 73 Year
  Sex: Male

DRUGS (3)
  1. IRINOTECAN HYDROCHLORIDE [Suspect]
     Active Substance: IRINOTECAN HYDROCHLORIDE
     Dosage: UNK
  2. CETUXIMAB [Concomitant]
     Active Substance: CETUXIMAB
     Dosage: UNK
  3. FILGRASTIM [Concomitant]
     Active Substance: FILGRASTIM
     Dosage: UNK

REACTIONS (3)
  - Mucosal inflammation [Unknown]
  - Pancytopenia [Unknown]
  - Streptococcal bacteraemia [Unknown]
